FAERS Safety Report 13916257 (Version 1)
Quarter: 2017Q3

REPORT INFORMATION
  Report Type: Spontaneous
  Country: JP (occurrence: JP)
  Receive Date: 20170829
  Receipt Date: 20170829
  Transmission Date: 20171127
  Serious: Yes (Hospitalization)
  Sender: FDA-Public Use
  Company Number: JP-ASTRAZENECA-2017SE86995

PATIENT
  Age: 14 Year
  Sex: Male

DRUGS (1)
  1. ZOMIG [Suspect]
     Active Substance: ZOLMITRIPTAN
     Dosage: AS REQUIRED
     Route: 048

REACTIONS (2)
  - Renal impairment [Unknown]
  - Off label use [Unknown]
